FAERS Safety Report 5848106-4 (Version None)
Quarter: 2008Q3

REPORT INFORMATION
  Report Type: 
  Country: None (occurrence: None)
  Receive Date: 20080818
  Receipt Date: 20080814
  Transmission Date: 20090109
  Serious: No
  Sender: FDA-Public Use
  Company Number: SE-EISAI MEDICAL RESEARCH-E2020-03108-SPO-SE

PATIENT
  Sex: Female

DRUGS (4)
  1. ARICEPT [Suspect]
     Indication: MEMORY IMPAIRMENT
     Route: 048
     Dates: start: 20051024
  2. TOLTERODINE TARTRATE [Concomitant]
     Route: 048
     Dates: start: 20040720
  3. DIAMOX SRC [Concomitant]
     Route: 048
     Dates: start: 20070928
  4. KALEORID [Concomitant]
     Route: 048
     Dates: start: 20080318

REACTIONS (3)
  - ATHETOSIS [None]
  - COGNITIVE DISORDER [None]
  - GAIT DISTURBANCE [None]
